FAERS Safety Report 4337236-4 (Version None)
Quarter: 2004Q2

REPORT INFORMATION
  Report Type: 
  Country: None (occurrence: None)
  Receive Date: 20040408
  Receipt Date: 20040325
  Transmission Date: 20050107
  Serious: Yes (Life-Threatening, Hospitalization)
  Sender: FDA-Public Use
  Company Number: DE-SHR-03-018742

PATIENT
  Age: 52 Year
  Sex: Female
  Weight: 58 kg

DRUGS (2)
  1. BETASERON [Suspect]
     Indication: MULTIPLE SCLEROSIS
     Dosage: 1 ML, EVERY 2D, SUBCUTANEOUS
     Route: 058
     Dates: start: 20010301, end: 20031209
  2. LEVOTHYROXINE SODIUM [Concomitant]

REACTIONS (10)
  - ATRIAL FLUTTER [None]
  - BUNDLE BRANCH BLOCK LEFT [None]
  - CARDIAC FAILURE [None]
  - CARDIOMYOPATHY ACUTE [None]
  - CONGESTIVE CARDIOMYOPATHY [None]
  - HEPATIC ENZYME INCREASED [None]
  - INFLUENZA [None]
  - MYOCARDITIS [None]
  - NASOPHARYNGITIS [None]
  - PLEURAL EFFUSION [None]
